FAERS Safety Report 6783964-0 (Version None)
Quarter: 2010Q2

REPORT INFORMATION
  Report Type: 
  Country: None (occurrence: None)
  Receive Date: 20100622
  Receipt Date: 20090824
  Transmission Date: 20101027
  Serious: No
  Sender: FDA-Public Use
  Company Number: US-BRISTOL-MYERS SQUIBB COMPANY-14753206

PATIENT
  Age: 50 Year
  Sex: Male

DRUGS (12)
  1. SINEMET CR [Interacting]
     Route: 065
  2. CO-CARELDOPA [Interacting]
     Indication: GAIT DISTURBANCE
     Route: 065
  3. AMANTADINE HCL [Interacting]
     Indication: DYSKINESIA
     Route: 065
  4. REQUIP [Suspect]
     Dosage: REQUIPXL TABLET-CONTROLLED RELEASE 08JUN-9JUL9:8 MG/D 10-21JUL9:10MG/D 24JUL9-:12MG/D
     Route: 065
  5. AZILECT [Suspect]
     Indication: MOTOR DYSFUNCTION
     Dosage: TABS
     Route: 065
  6. CYMBALTA [Suspect]
     Indication: DEPRESSION
     Dosage: CAPSULE
     Route: 065
  7. KLONOPIN [Suspect]
     Indication: INITIAL INSOMNIA
     Dosage: TABS
     Route: 065
  8. BENZHEXOL HCL [Suspect]
     Indication: MUSCLE RIGIDITY
     Route: 065
  9. CENTRUM [Suspect]
     Indication: ROUTINE HEALTH MAINTENANCE
     Route: 065
  10. VITAMIN D [Suspect]
     Route: 065
  11. LINSEED [Suspect]
     Dosage: 1 DF- 1 TABLESPOON
     Route: 065
  12. UBIDECARENONE [Suspect]
     Route: 065

REACTIONS (19)
  - AKINESIA [None]
  - BALANCE DISORDER [None]
  - CONDITION AGGRAVATED [None]
  - CONTUSION [None]
  - DRUG EFFECT DECREASED [None]
  - DRUG EFFECT DELAYED [None]
  - DRUG INTERACTION [None]
  - DYSGRAPHIA [None]
  - DYSKINESIA [None]
  - FALL [None]
  - FATIGUE [None]
  - HYPOAESTHESIA [None]
  - HYPOTONIA [None]
  - INSOMNIA [None]
  - JOINT SWELLING [None]
  - MUSCULAR WEAKNESS [None]
  - MUSCULOSKELETAL DISCOMFORT [None]
  - SOMNOLENCE [None]
  - TREMOR [None]
